FAERS Safety Report 8901352 (Version 2)
Quarter: 2013Q1

REPORT INFORMATION
  Report Type: Report from Study
  Country: US (occurrence: US)
  Receive Date: 20121108
  Receipt Date: 20130116
  Transmission Date: 20140127
  Serious: Yes (Hospitalization)
  Sender: FDA-Public Use
  Company Number: US-JNJFOC-20121102579

PATIENT
  Age: 61 Year
  Sex: Male
  Weight: 120.2 kg

DRUGS (1)
  1. USTEKINUMAB [Suspect]
     Indication: PSORIASIS
     Route: 058
     Dates: start: 201005

REACTIONS (4)
  - Diverticular perforation [Recovered/Resolved with Sequelae]
  - Postoperative wound infection [Recovered/Resolved]
  - Small intestinal obstruction [Recovered/Resolved]
  - Anastomotic leak [Recovered/Resolved with Sequelae]
